FAERS Safety Report 24623412 (Version 1)
Quarter: 2024Q4

REPORT INFORMATION
  Report Type: Spontaneous
  Country: AR (occurrence: AR)
  Receive Date: 20241115
  Receipt Date: 20241115
  Transmission Date: 20250115
  Serious: Yes (Other)
  Sender: COLGATE
  Company Number: AR-COLGATE PALMOLIVE COMPANY-20241101620

PATIENT

DRUGS (1)
  1. PERIOGARD [Suspect]
     Active Substance: CHLORHEXIDINE GLUCONATE
     Dosage: UNK

REACTIONS (3)
  - Seizure [Unknown]
  - Accidental exposure to product by child [Unknown]
  - Exposure via ingestion [Unknown]
